FAERS Safety Report 17326900 (Version 1)
Quarter: 2020Q1

REPORT INFORMATION
  Report Type: Spontaneous
  Country: FR (occurrence: FR)
  Receive Date: 20200127
  Receipt Date: 20200127
  Transmission Date: 20200409
  Serious: Yes (Hospitalization)
  Sender: FDA-Public Use
  Company Number: FR-MYLANLABS-2020M1001829

PATIENT
  Age: 77 Year
  Sex: Female
  Weight: 109.9 kg

DRUGS (1)
  1. ALLOPURINOL. [Suspect]
     Active Substance: ALLOPURINOL
     Indication: HYPERURICAEMIA
     Dosage: 300 MILLIGRAM, QD
     Route: 048
     Dates: start: 20190715, end: 20190822

REACTIONS (2)
  - Hypersensitivity vasculitis [Recovered/Resolved]
  - Rheumatoid vasculitis [Recovered/Resolved]

NARRATIVE: CASE EVENT DATE: 201907
